FAERS Safety Report 21958023 (Version 2)
Quarter: 2023Q1

REPORT INFORMATION
  Report Type: Spontaneous
  Country: US (occurrence: US)
  Receive Date: 20230206
  Receipt Date: 20230327
  Transmission Date: 20230418
  Serious: No
  Sender: FDA-Public Use
  Company Number: US-SA-SAC20230203001203

PATIENT
  Age: 44 Year
  Sex: Female

DRUGS (12)
  1. DUPIXENT [Suspect]
     Active Substance: DUPILUMAB
     Indication: Asthma
     Dosage: 300 MG, QOW
     Route: 058
     Dates: start: 20220902
  2. VICTOZA [Concomitant]
     Active Substance: LIRAGLUTIDE
  3. FARXIGA [Concomitant]
     Active Substance: DAPAGLIFLOZIN PROPANEDIOL
  4. ATORVASTATIN [Concomitant]
     Active Substance: ATORVASTATIN
  5. ESCITALOPRAM [Concomitant]
     Active Substance: ESCITALOPRAM OXALATE
  6. LISINOPRIL [Concomitant]
     Active Substance: LISINOPRIL
  7. PANTOPRAZOLE [Concomitant]
     Active Substance: PANTOPRAZOLE
  8. MOUNJARO [Concomitant]
     Active Substance: TIRZEPATIDE
  9. PHENTERMINE [Concomitant]
     Active Substance: PHENTERMINE
  10. ALBUTEROL [Concomitant]
     Active Substance: ALBUTEROL
  11. LANTUS SOLOSTAR [Concomitant]
     Active Substance: INSULIN GLARGINE
  12. NYSTOP [Concomitant]
     Active Substance: NYSTATIN

REACTIONS (3)
  - Injection site pruritus [Not Recovered/Not Resolved]
  - Oral herpes [Unknown]
  - Injection site reaction [Unknown]
